FAERS Safety Report 24142269 (Version 1)
Quarter: 2024Q3

REPORT INFORMATION
  Report Type: Spontaneous
  Country: DE (occurrence: DE)
  Receive Date: 20240726
  Receipt Date: 20240726
  Transmission Date: 20241017
  Serious: Yes (Other)
  Sender: FRESENIUS KABI
  Company Number: DE-BRISTOL-MYERS SQUIBB COMPANY-2024-109574

PATIENT
  Age: 56 Year
  Sex: Female

DRUGS (4)
  1. PACLITAXEL [Suspect]
     Active Substance: PACLITAXEL
     Indication: Product used for unknown indication
  2. CARBOPLATIN [Suspect]
     Active Substance: CARBOPLATIN
     Indication: Product used for unknown indication
     Dosage: AUC5, DQ. 4 CYCLES MAINTENANCE THERAPY
  3. OPDIVO [Suspect]
     Active Substance: NIVOLUMAB
     Indication: Bronchial carcinoma
  4. YERVOY [Suspect]
     Active Substance: IPILIMUMAB
     Indication: Bronchial carcinoma

REACTIONS (1)
  - Stevens-Johnson syndrome [Unknown]
